FAERS Safety Report 5602437-1 (Version None)
Quarter: 2008Q1

REPORT INFORMATION
  Report Type: 
  Country: None (occurrence: None)
  Receive Date: 20080125
  Receipt Date: 20080114
  Transmission Date: 20080703
  Serious: Yes (Hospitalization, Other)
  Sender: FDA-Public Use
  Company Number: FR-BRISTOL-MYERS SQUIBB COMPANY-14045322

PATIENT
  Age: 28 Year
  Sex: Female

DRUGS (4)
  1. ENDOXAN [Suspect]
     Indication: ACUTE LYMPHOCYTIC LEUKAEMIA
     Dosage: 2ND INFUSION ON 09 OCT 2007
     Route: 042
     Dates: start: 20070924
  2. ONCOVIN [Suspect]
     Indication: ACUTE LYMPHOCYTIC LEUKAEMIA
     Dosage: 2ND INFUSION ON 09-OCT-2007
     Route: 042
     Dates: start: 20071009
  3. CERUBIDINE [Suspect]
     Indication: ACUTE LYMPHOCYTIC LEUKAEMIA
     Dosage: 2ND INFUSION ON 09-OCT-2007
     Route: 042
     Dates: start: 20070924
  4. ASPARAGINASE [Suspect]
     Indication: ACUTE LYMPHOCYTIC LEUKAEMIA
     Route: 042
     Dates: start: 20070924, end: 20071022

REACTIONS (6)
  - ANTEPARTUM HAEMORRHAGE [None]
  - APLASIA [None]
  - CAESAREAN SECTION [None]
  - PREGNANCY [None]
  - PREMATURE BABY [None]
  - PREMATURE LABOUR [None]
